FAERS Safety Report 13645711 (Version 2)
Quarter: 2017Q2

REPORT INFORMATION
  Report Type: Report from Study
  Country: US (occurrence: US)
  Receive Date: 20170613
  Receipt Date: 20170614
  Transmission Date: 20170830
  Serious: Yes (Hospitalization, Other)
  Sender: FDA-Public Use
  Company Number: US-ROCHE-1945704

PATIENT
  Sex: Male
  Weight: 72.64 kg

DRUGS (2)
  1. TEMODAR [Concomitant]
     Active Substance: TEMOZOLOMIDE
  2. AVASTIN [Suspect]
     Active Substance: BEVACIZUMAB
     Indication: PRODUCT USED FOR UNKNOWN INDICATION
     Route: 065
     Dates: start: 201605

REACTIONS (8)
  - Cerebral haemorrhage [Unknown]
  - Aphasia [Unknown]
  - Haematemesis [Unknown]
  - Neoplasm progression [Unknown]
  - Haematochezia [Unknown]
  - White blood cell count decreased [Unknown]
  - Seizure [Unknown]
  - Platelet count decreased [Unknown]
